FAERS Safety Report 25552135 (Version 1)
Quarter: 2025Q3

REPORT INFORMATION
  Report Type: Report from Study
  Country: EU (occurrence: EU)
  Receive Date: 20250715
  Receipt Date: 20250715
  Transmission Date: 20251020
  Serious: Yes (Other)
  Sender: ABBVIE
  Company Number: EU-ABBVIE-6323599

PATIENT
  Age: 74 Year
  Sex: Female

DRUGS (2)
  1. CARBIDOPA\LEVODOPA [Suspect]
     Active Substance: CARBIDOPA\LEVODOPA
     Indication: Parkinson^s disease
     Route: 050
     Dates: start: 20160428
  2. CARBIDOPA\LEVODOPA [Suspect]
     Active Substance: CARBIDOPA\LEVODOPA
     Route: 050

REACTIONS (2)
  - Seizure [Recovered/Resolved]
  - Dystonia [Recovered/Resolved]

NARRATIVE: CASE EVENT DATE: 20250101
